FAERS Safety Report 10990612 (Version 1)
Quarter: 2015Q1

REPORT INFORMATION
  Report Type: Spontaneous
  Country: US (occurrence: None)
  Receive Date: 20150326
  Receipt Date: 20150326
  Transmission Date: 20150721
  Serious: Yes (Other)
  Sender: FDA-Public Use
  Company Number: CTI_01641_2014

PATIENT
  Age: 79 Year
  Sex: Female

DRUGS (3)
  1. ACTIVASE RT-PA [Concomitant]
  2. NICARDIPINE [Suspect]
     Active Substance: NICARDIPINE
     Indication: CEREBROVASCULAR ACCIDENT
     Dosage: PREMIX 0.1MG/ML (5 MG, TITRATED UP AT 2.5 MG/HR EVERY 15 MINS) (RANGE 5 MG/HR TO 15 MG/HR)
     Route: 042
     Dates: start: 20140815, end: 20140816
  3. NICARDIPINE [Suspect]
     Active Substance: NICARDIPINE
     Indication: HYPERTENSION
     Dosage: PREMIX 0.1MG/ML (5 MG, TITRATED UP AT 2.5 MG/HR EVERY 15 MINS) (RANGE 5 MG/HR TO 15 MG/HR)
     Route: 042
     Dates: start: 20140815, end: 20140816

REACTIONS (3)
  - Hypertension [None]
  - Drug ineffective [None]
  - Product quality issue [None]

NARRATIVE: CASE EVENT DATE: 20140815
